FAERS Safety Report 6251799-3 (Version None)
Quarter: 2009Q2

REPORT INFORMATION
  Report Type: 
  Country: None (occurrence: None)
  Receive Date: 20090630
  Receipt Date: 20090619
  Transmission Date: 20091009
  Serious: Yes (Death)
  Sender: FDA-Public Use
  Company Number: US-PFIZER INC-2009200447

PATIENT
  Age: 30 Year
  Sex: Female

DRUGS (4)
  1. GEODON [Suspect]
     Dosage: 40 MG, UNK
     Dates: start: 20081001
  2. ABILIFY [Suspect]
  3. TRAMADOL [Suspect]
  4. ZOLPIDEM [Suspect]

REACTIONS (1)
  - MYOCARDIAL INFARCTION [None]
